FAERS Safety Report 4919615-7 (Version None)
Quarter: 2006Q1

REPORT INFORMATION
  Report Type: 
  Country: None (occurrence: None)
  Receive Date: 20060113
  Receipt Date: 20051121
  Transmission Date: 20060701
  Serious: No
  Sender: FDA-Public Use
  Company Number: 2005SP004097

PATIENT
  Age: 52 Year
  Sex: Female
  Weight: 97.5234 kg

DRUGS (2)
  1. LUNESTA [Suspect]
     Dosage: SEE IMAGE
     Route: 048
     Dates: start: 20051101, end: 20051104
  2. LUNESTA [Suspect]
     Dosage: SEE IMAGE
     Route: 048
     Dates: start: 20051101, end: 20051104

REACTIONS (2)
  - DYSGEUSIA [None]
  - PARADOXICAL DRUG REACTION [None]
